FAERS Safety Report 23437867 (Version 1)
Quarter: 2024Q1

REPORT INFORMATION
  Report Type: Spontaneous
  Country: US (occurrence: None)
  Receive Date: 20240123
  Receipt Date: 20240123
  Transmission Date: 20240410
  Serious: Yes (Hospitalization)
  Sender: FDA-Public Use
  Company Number: None

PATIENT
  Sex: Male

DRUGS (7)
  1. IMATINIB MESYLATE [Suspect]
     Active Substance: IMATINIB MESYLATE
     Indication: Malignant melanoma
     Dosage: 400 MG ORAL??TAKE ON TABLET BY MOUTH DAILY (ALONG WITH TWO TABLETS OF 100MG FOR TOTAL OF 600 MG DAIL
     Route: 048
     Dates: start: 20220324
  2. ATORVASTATIN TAB 20MG [Concomitant]
  3. ENTYVIO INJ 300MG [Concomitant]
  4. GLEEVEC TAB 400MG [Concomitant]
  5. KEYTRUDA INJ 100MG/4M [Concomitant]
  6. MEMANTINE TAB HCL 5MG [Concomitant]
  7. MESALAMINE TAB 1.2GM [Concomitant]

REACTIONS (2)
  - Renal failure [None]
  - Therapy cessation [None]
